FAERS Safety Report 24161707 (Version 1)
Quarter: 2024Q3

REPORT INFORMATION
  Report Type: Spontaneous
  Country: AU (occurrence: AU)
  Receive Date: 20240801
  Receipt Date: 20240801
  Transmission Date: 20241017
  Serious: Yes (Hospitalization, Other)
  Sender: NOVITIUM PHARMA
  Company Number: AU-NOVITIUMPHARMA-2024AUNVP01440

PATIENT
  Age: 17 Year
  Sex: Female

DRUGS (1)
  1. PREDNISONE [Suspect]
     Active Substance: PREDNISONE
     Indication: Immunosuppression
     Dosage: DAILY
     Route: 048

REACTIONS (2)
  - Transplant failure [Unknown]
  - Treatment noncompliance [Unknown]
